FAERS Safety Report 9435885 (Version 1)
Quarter: 2013Q3

REPORT INFORMATION
  Report Type: Spontaneous
  Country: US (occurrence: None)
  Receive Date: 20130801
  Receipt Date: 20130801
  Transmission Date: 20140515
  Serious: No
  Sender: FDA-Public Use
  Company Number: None

PATIENT
  Sex: Female

DRUGS (5)
  1. AZITHROMYCIN [Suspect]
     Indication: CAMPYLOBACTER GASTROENTERITIS
     Dates: start: 20111212, end: 20111219
  2. AZITHROMYCIN [Suspect]
     Dates: start: 20111212, end: 20111219
  3. AZITHROMYCIN [Suspect]
     Dates: start: 20111212, end: 20111219
  4. AZITHROMYCIN [Suspect]
     Dates: start: 20111212, end: 20111219
  5. BACTRIM [Suspect]
     Indication: URINARY TRACT INFECTION
     Dates: start: 20111109, end: 20111113

REACTIONS (1)
  - Drug-induced liver injury [None]
